FAERS Safety Report 25038240 (Version 1)
Quarter: 2025Q1

REPORT INFORMATION
  Report Type: Spontaneous
  Country: US (occurrence: US)
  Receive Date: 20250304
  Receipt Date: 20250304
  Transmission Date: 20250409
  Serious: No
  Sender: PFIZER
  Company Number: US-PFIZER INC-202500048813

PATIENT
  Age: 78 Year
  Sex: Female

DRUGS (1)
  1. METHOTREXATE SODIUM [Suspect]
     Active Substance: METHOTREXATE SODIUM

REACTIONS (6)
  - Muscular weakness [Unknown]
  - Arthralgia [Unknown]
  - Joint stiffness [Unknown]
  - Dry eye [Unknown]
  - Alopecia [Unknown]
  - Myalgia [Unknown]
